FAERS Safety Report 12602135 (Version 1)
Quarter: 2016Q3

REPORT INFORMATION
  Report Type: Spontaneous
  Country: US (occurrence: US)
  Receive Date: 20160728
  Receipt Date: 20160728
  Transmission Date: 20161109
  Serious: No
  Sender: FDA-Public Use
  Company Number: US-PFIZER INC-2015473942

PATIENT
  Age: 45 Year
  Sex: Female
  Weight: 98.41 kg

DRUGS (18)
  1. TOPAMAX [Concomitant]
     Active Substance: TOPIRAMATE
     Dosage: 200 MG, 2X/DAY
     Route: 048
  2. FLEXERIL [Concomitant]
     Active Substance: CYCLOBENZAPRINE HYDROCHLORIDE
     Indication: MUSCLE SPASMS
     Dosage: 10 MG, AS NEEDED (3 TIMES DAILY)
     Route: 048
  3. DEXILANT [Concomitant]
     Active Substance: DEXLANSOPRAZOLE
     Dosage: 60 MG, 1X/DAY (EVERY MORNING)
     Route: 048
  4. MIRABEGRON [Concomitant]
     Active Substance: MIRABEGRON
     Dosage: 50 MG, DAILY
     Route: 048
  5. ZOLOFT [Concomitant]
     Active Substance: SERTRALINE HYDROCHLORIDE
     Dosage: 200 MG, 1X/DAY (AFTER SUPPER)
     Route: 048
  6. TETRAHYDROZOLINE [Concomitant]
     Active Substance: TETRAHYDROZOLINE
     Indication: DRY EYE
     Dosage: 2 GTT, AS NEEDED (0.05%/1 DROP INTO BOTH EYES )
     Route: 047
  7. DESYREL [Concomitant]
     Active Substance: TRAZODONE HYDROCHLORIDE
     Dosage: 300 MG, 1X/DAY (AT BEDTIME)
     Route: 048
  8. ESTRACE [Concomitant]
     Active Substance: ESTRADIOL
     Dosage: 1 MG, DAILY
     Route: 048
  9. LYRICA [Suspect]
     Active Substance: PREGABALIN
     Indication: NEUROPATHY PERIPHERAL
  10. XANAX [Concomitant]
     Active Substance: ALPRAZOLAM
     Indication: ANXIETY
     Dosage: 1 MG, AS NEEDED (3 TIMES DAILY)
     Route: 048
  11. HYDRODIURIL [Concomitant]
     Active Substance: HYDROCHLOROTHIAZIDE
     Dosage: 25 MG, DAILY
     Route: 048
  12. LYRICA [Suspect]
     Active Substance: PREGABALIN
     Indication: FIBROMYALGIA
     Dosage: 300 MG, 3X/DAY
     Route: 048
  13. BENTYL [Concomitant]
     Active Substance: DICYCLOMINE HYDROCHLORIDE
     Indication: MUSCLE SPASMS
     Dosage: 20 MG, AS NEEDED (EVERY 6 HOURS)
     Route: 048
  14. ASPIRIN (E.C.) [Concomitant]
     Active Substance: ASPIRIN
     Dosage: 325 MG, 1X/DAY (EVERY EVENING)
     Route: 048
  15. LASIX [Concomitant]
     Active Substance: FUROSEMIDE
     Dosage: 40 MG, DAILY
     Route: 048
  16. MIRTAZAPINE. [Concomitant]
     Active Substance: MIRTAZAPINE
     Dosage: 15 MG, 1X/DAY (AT BEDTIME)
     Route: 048
  17. LIPITOR [Concomitant]
     Active Substance: ATORVASTATIN CALCIUM
     Dosage: 40 MG, 1X/DAY (EVERY EVENING)
     Route: 048
  18. REGLAN [Concomitant]
     Active Substance: METOCLOPRAMIDE HYDROCHLORIDE
     Dosage: 10 MG, 2X/DAY
     Route: 048

REACTIONS (3)
  - Pain [Not Recovered/Not Resolved]
  - Prescribed overdose [Unknown]
  - Drug dose omission [Not Recovered/Not Resolved]

NARRATIVE: CASE EVENT DATE: 201607
